FAERS Safety Report 5910621-2 (Version None)
Quarter: 2008Q4

REPORT INFORMATION
  Report Type: 
  Country: None (occurrence: None)
  Receive Date: 20081007
  Receipt Date: 20081003
  Transmission Date: 20090506
  Serious: Yes (Life-Threatening)
  Sender: FDA-Public Use
  Company Number: IT-ASTRAZENECA-2008SE04627

PATIENT
  Age: 9845 Day
  Sex: Female

DRUGS (2)
  1. MARCAINA [Suspect]
     Indication: CAESAREAN SECTION
     Route: 037
     Dates: start: 20080917, end: 20080917
  2. MORPHINE [Concomitant]

REACTIONS (3)
  - DYSPNOEA [None]
  - FORMICATION [None]
  - HYPOPHONESIS [None]
